FAERS Safety Report 6894965-6 (Version None)
Quarter: 2010Q3

REPORT INFORMATION
  Report Type: 
  Country: None (occurrence: None)
  Receive Date: 20100730
  Receipt Date: 20100730
  Transmission Date: 20110219
  Serious: Yes (Life-Threatening)
  Sender: FDA-Public Use
  Company Number: None

PATIENT
  Age: 66 Year
  Sex: Female
  Weight: 42.6381 kg

DRUGS (1)
  1. PROMETHAZINE [Suspect]
     Indication: NAUSEA
     Dosage: ONE OR 2 TAB Q 6 H BY MOUTH
     Route: 048
     Dates: start: 20100710

REACTIONS (6)
  - ABASIA [None]
  - DIZZINESS [None]
  - MUSCLE TWITCHING [None]
  - NIGHTMARE [None]
  - RESTLESSNESS [None]
  - TREMOR [None]
